FAERS Safety Report 19221819 (Version 1)
Quarter: 2021Q2

REPORT INFORMATION
  Report Type: Spontaneous
  Country: US (occurrence: US)
  Receive Date: 20210505
  Receipt Date: 20210505
  Transmission Date: 20210717
  Serious: Yes (Life-Threatening, Hospitalization, Other)
  Sender: FDA-Public Use
  Company Number: US-SLATE RUN PHARMACEUTICALS-21US000478

PATIENT

DRUGS (6)
  1. AZITHROMYCIN USP [Suspect]
     Active Substance: AZITHROMYCIN
     Indication: MATERNAL EXPOSURE TIMING UNSPECIFIED
     Route: 064
  2. GENTAMICIN. [Concomitant]
     Active Substance: GENTAMICIN
     Indication: EVIDENCE BASED TREATMENT
     Dosage: UNK
     Route: 065
  3. AMPICILLIN [Concomitant]
     Active Substance: AMPICILLIN
     Indication: EVIDENCE BASED TREATMENT
     Dosage: UNK
     Route: 065
  4. CEPHALEXIN [CEFALEXIN] [Concomitant]
     Active Substance: CEPHALEXIN
     Indication: MATERNAL EXPOSURE TIMING UNSPECIFIED
     Route: 064
  5. GENTAMICIN. [Concomitant]
     Active Substance: GENTAMICIN
     Indication: HYPOPERFUSION
     Dosage: UNK
     Route: 065
  6. CORTICOSTEROIDS [Concomitant]
     Active Substance: CORTICOSTEROID NOS
     Indication: MATERNAL EXPOSURE TIMING UNSPECIFIED
     Route: 064

REACTIONS (27)
  - Breech presentation [Recovered/Resolved]
  - Electrocardiogram T wave amplitude increased [Unknown]
  - Neonatal respiratory acidosis [Unknown]
  - Staphylococcal sepsis [Recovered/Resolved]
  - Thrombocytopenia neonatal [Unknown]
  - Neonatal respiratory failure [Unknown]
  - Apgar score low [Unknown]
  - Metabolic acidosis [Unknown]
  - Blood urea abnormal [Recovered/Resolved]
  - Bronchopulmonary dysplasia [Not Recovered/Not Resolved]
  - Blood sodium abnormal [Recovered/Resolved]
  - Blood calcium abnormal [Recovered/Resolved]
  - Premature baby [Unknown]
  - Hypoperfusion [Unknown]
  - Lung infiltration [Unknown]
  - Hyperkalaemia [Recovered/Resolved]
  - General physical health deterioration [Unknown]
  - Urine output decreased [Unknown]
  - Foetal exposure during pregnancy [Recovered/Resolved]
  - C-reactive protein increased [Unknown]
  - Neonatal hypotension [Unknown]
  - Blood creatinine abnormal [Recovered/Resolved]
  - Adrenocortical insufficiency acute [Unknown]
  - Leukocytosis [Unknown]
  - Blood chloride abnormal [Recovered/Resolved]
  - Carbon dioxide abnormal [Recovered/Resolved]
  - Blood glucose abnormal [Recovered/Resolved]
